FAERS Safety Report 7003692-6 (Version None)
Quarter: 2010Q3

REPORT INFORMATION
  Report Type: 
  Country: None (occurrence: None)
  Receive Date: 20100920
  Receipt Date: 20090622
  Transmission Date: 20110219
  Serious: No
  Sender: FDA-Public Use
  Company Number: US-WYE-H09876809

PATIENT
  Sex: Male

DRUGS (2)
  1. PROTONIX [Suspect]
     Indication: GASTROOESOPHAGEAL REFLUX DISEASE
     Route: 048
     Dates: start: 20090601, end: 20090610
  2. PROTONIX [Suspect]
     Dosage: ^TRIED CUTTING THE TABLET IN HALF^
     Route: 048
     Dates: start: 20090611

REACTIONS (4)
  - ABDOMINAL DISTENSION [None]
  - FLATULENCE [None]
  - INTENTIONAL DRUG MISUSE [None]
  - SALIVARY HYPERSECRETION [None]
